FAERS Safety Report 24236347 (Version 1)
Quarter: 2024Q3

REPORT INFORMATION
  Report Type: Report from Study
  Country: CA (occurrence: None)
  Receive Date: 20240822
  Receipt Date: 20240822
  Transmission Date: 20241017
  Serious: Yes (Hospitalization, Other)
  Sender: ASTRAZENECA
  Company Number: 2023A117115

PATIENT
  Age: 682 Month
  Sex: Male

DRUGS (6)
  1. TEZSPIRE [Suspect]
     Active Substance: TEZEPELUMAB-EKKO
     Indication: Asthma
     Dosage: 210.0MG UNKNOWN
     Route: 058
     Dates: start: 20230320
  2. TEZSPIRE [Suspect]
     Active Substance: TEZEPELUMAB-EKKO
     Indication: Asthma
     Dosage: 210.0MG UNKNOWN
     Route: 058
     Dates: start: 20230612
  3. PREDNISONE [Concomitant]
     Active Substance: PREDNISONE
     Route: 048
     Dates: start: 20221122
  4. VENTOLIN [Concomitant]
     Active Substance: ALBUTEROL SULFATE
     Dosage: AS REQUIRED AS REQUIRED
     Dates: start: 2017
  5. ATROVENT [Concomitant]
     Active Substance: IPRATROPIUM BROMIDE
     Dosage: 20 MCG 2 PUFFS Q4-6H PRN
     Dates: start: 202211
  6. SYMBICORT [Concomitant]
     Active Substance: BUDESONIDE\FORMOTEROL FUMARATE DIHYDRATE
     Dosage: 200/6 MCG 2 PUFFS, UNK UNKNOWN
     Dates: start: 2017

REACTIONS (5)
  - Device related infection [Unknown]
  - Neoplasm [Unknown]
  - Penile cancer [Unknown]
  - Drug ineffective [Unknown]
  - Product dose omission issue [Unknown]

NARRATIVE: CASE EVENT DATE: 20230701
